FAERS Safety Report 4900627-4 (Version None)
Quarter: 2006Q1

REPORT INFORMATION
  Report Type: 
  Country: None (occurrence: None)
  Receive Date: 20060203
  Receipt Date: 20060123
  Transmission Date: 20060701
  Serious: Yes (Life-Threatening, Disabling)
  Sender: FDA-Public Use
  Company Number: GB-BRISTOL-MYERS SQUIBB COMPANY-13260179

PATIENT
  Age: 79 Year
  Sex: Male

DRUGS (3)
  1. MITOMYCIN [Suspect]
     Indication: BLADDER CANCER
     Route: 043
     Dates: start: 20030101
  2. PRAVASTATIN SODIUM [Concomitant]
     Dates: start: 19980101
  3. DOXAZOSIN [Concomitant]
     Dates: start: 19980101

REACTIONS (2)
  - DYSPNOEA [None]
  - INTERSTITIAL LUNG DISEASE [None]
